FAERS Safety Report 5195317-X (Version None)
Quarter: 2006Q4

REPORT INFORMATION
  Report Type: 
  Country: None (occurrence: None)
  Receive Date: 20061229
  Receipt Date: 20061219
  Transmission Date: 20070319
  Serious: Yes (Other)
  Sender: FDA-Public Use
  Company Number: US-PFIZER INC-2006154805

PATIENT
  Age: 44 Year
  Sex: Female

DRUGS (6)
  1. GABAPENTIN [Suspect]
     Route: 048
  2. NEFAZODONE HCL [Interacting]
     Route: 048
  3. CARVEDILOL [Concomitant]
  4. RABEPRAZOLE SODIUM [Concomitant]
  5. DIGOXIN [Concomitant]
  6. QUINAPRIL HCL [Concomitant]

REACTIONS (8)
  - BLOOD ETHANOL INCREASED [None]
  - CONDUCTION DISORDER [None]
  - DEPRESSED LEVEL OF CONSCIOUSNESS [None]
  - DRUG INTERACTION [None]
  - HYPOTENSION [None]
  - INTENTIONAL OVERDOSE [None]
  - LETHARGY [None]
  - TACHYCARDIA [None]
